FAERS Safety Report 6266327-6 (Version None)
Quarter: 2009Q3

REPORT INFORMATION
  Report Type: 
  Country: None (occurrence: None)
  Receive Date: 20090713
  Receipt Date: 20090709
  Transmission Date: 20100115
  Serious: Yes (Death, Hospitalization, Other)
  Sender: FDA-Public Use
  Company Number: PHHY2009BR28323

PATIENT
  Sex: Male

DRUGS (1)
  1. EXFORGE [Suspect]
     Indication: HYPERTENSION
     Dosage: 320/5 MG
     Route: 048
     Dates: end: 20090314

REACTIONS (8)
  - CARDIAC ARREST [None]
  - COMA [None]
  - INTESTINAL PERFORATION [None]
  - LUNG INFECTION [None]
  - PNEUMONIA [None]
  - RENAL DISORDER [None]
  - SEPSIS [None]
  - SURGERY [None]
